FAERS Safety Report 9923501 (Version 1)
Quarter: 2014Q1

REPORT INFORMATION
  Report Type: Spontaneous
  Country: US (occurrence: US)
  Receive Date: 20140225
  Receipt Date: 20140225
  Transmission Date: 20141002
  Serious: No
  Sender: FDA-Public Use
  Company Number: US-AMGEN-USASP2013082812

PATIENT
  Age: 54 Year
  Sex: Female
  Weight: 136 kg

DRUGS (12)
  1. ENBREL [Suspect]
     Indication: PRODUCT USED FOR UNKNOWN INDICATION
     Dosage: 50 MG, QWK
     Route: 058
  2. VITAMIN E                          /00110501/ [Concomitant]
     Dosage: 1000 UNIT, UNK
  3. VITAMIN B-12 [Concomitant]
     Dosage: 1000 UNK, UNK (TR)
  4. PLAQUENIL                          /00072602/ [Concomitant]
     Dosage: 200 MG, UNK
  5. VICODIN ES [Concomitant]
     Dosage: UNK (7.5-750)
  6. COREG [Concomitant]
     Dosage: 6.25 MG, UNK
  7. CYMBALTA [Concomitant]
     Dosage: 60 MG, UNK
  8. DICLOFENAC [Concomitant]
     Dosage: 75 MG, UNK (EC)
  9. LISINOPRIL [Concomitant]
     Dosage: 20 MG, UNK
  10. LEVOTHYROXINE [Concomitant]
     Dosage: 125 MUG, UNK
  11. OMEPRAZOLE [Concomitant]
     Dosage: 20 MG, UNK
  12. FISH OIL [Concomitant]
     Dosage: UNK

REACTIONS (1)
  - Therapeutic response decreased [Unknown]
